FAERS Safety Report 17759039 (Version 3)
Quarter: 2020Q3

REPORT INFORMATION
  Report Type: Report from Study
  Country: None (occurrence: US)
  Receive Date: 20200508
  Receipt Date: 20200813
  Transmission Date: 20201102
  Serious: Yes (Life-Threatening, Hospitalization, Other)
  Sender: FDA-Public Use
  Company Number: US-ABBVIE-20K-163-3362395-00

PATIENT
  Sex: Male
  Weight: 87.62 kg

DRUGS (19)
  1. THERATEARS [Concomitant]
     Active Substance: CARBOXYMETHYLCELLULOSE SODIUM
     Indication: DRY EYE
  2. TELMISARTAN/HCT [Concomitant]
     Active Substance: HYDROCHLOROTHIAZIDE\TELMISARTAN
     Indication: HYPERTENSION
     Dosage: 80 MG/ 12.5 MG
  3. OCTAGAM IMMUNE GLOBULIN (HUMAN) [Concomitant]
     Active Substance: HUMAN IMMUNOGLOBULIN G
     Indication: RESPIRATORY DISORDER
  4. SULFASALAZINE. [Concomitant]
     Active Substance: SULFASALAZINE
     Indication: JOINT STIFFNESS
     Route: 061
  5. ZYRTEC [Concomitant]
     Active Substance: CETIRIZINE HYDROCHLORIDE
     Indication: HYPERSENSITIVITY
  6. OMEPRAZOLE. [Concomitant]
     Active Substance: OMEPRAZOLE
     Indication: GASTROOESOPHAGEAL REFLUX DISEASE
  7. TYLENOL [Concomitant]
     Active Substance: ACETAMINOPHEN
     Indication: ARTHRALGIA
  8. OCTAGAM IMMUNE GLOBULIN (HUMAN) [Concomitant]
     Active Substance: HUMAN IMMUNOGLOBULIN G
     Indication: IMMUNE SYSTEM DISORDER
  9. BUSPAR [Concomitant]
     Active Substance: BUSPIRONE HYDROCHLORIDE
     Indication: ANXIETY
     Route: 048
  10. SULFASALAZINE. [Concomitant]
     Active Substance: SULFASALAZINE
     Indication: ARTHRITIS
  11. HUMIRA [Suspect]
     Active Substance: ADALIMUMAB
     Indication: RHEUMATOID ARTHRITIS
     Route: 058
     Dates: start: 2005
  12. XARELTO [Concomitant]
     Active Substance: RIVAROXABAN
     Indication: THROMBOSIS PROPHYLAXIS
  13. ROSUVASTATIN CALCIUM. [Concomitant]
     Active Substance: ROSUVASTATIN CALCIUM
     Indication: BLOOD CHOLESTEROL INCREASED
     Dosage: NIGHT
  14. SYMBICORT [Concomitant]
     Active Substance: BUDESONIDE\FORMOTEROL FUMARATE DIHYDRATE
     Indication: CHRONIC OBSTRUCTIVE PULMONARY DISEASE
  15. VENLAFAXINE HCL [Concomitant]
     Active Substance: VENLAFAXINE HYDROCHLORIDE
     Indication: ANXIETY
     Dosage: ER
  16. ALBUTEROL. [Concomitant]
     Active Substance: ALBUTEROL
     Indication: WHEEZING
  17. METAMUCIL [Concomitant]
     Active Substance: PLANTAGO SEED
     Indication: DIVERTICULUM
     Dosage: 1 TSP/DAY
  18. BUSPAR [Concomitant]
     Active Substance: BUSPIRONE HYDROCHLORIDE
     Indication: FRUSTRATION TOLERANCE DECREASED
  19. OCTAGAM IMMUNE GLOBULIN (HUMAN) [Concomitant]
     Active Substance: HUMAN IMMUNOGLOBULIN G
     Indication: IMMUNOGLOBULIN THERAPY
     Dosage: 5% LIQUID PREPARATION

REACTIONS (25)
  - Osteoarthritis [Recovered/Resolved]
  - Varicose vein [Unknown]
  - Arthrodesis [Unknown]
  - Basal cell carcinoma [Unknown]
  - Visual impairment [Unknown]
  - Hypoacusis [Unknown]
  - Muscle disorder [Recovering/Resolving]
  - Carpal tunnel syndrome [Unknown]
  - Spinal laminectomy [Unknown]
  - Osteoarthritis [Recovered/Resolved]
  - Arthralgia [Recovered/Resolved]
  - Chronic obstructive pulmonary disease [Unknown]
  - Back pain [Unknown]
  - Pain in extremity [Unknown]
  - Rotator cuff syndrome [Unknown]
  - Cataract [Unknown]
  - Arthralgia [Recovered/Resolved]
  - Therapeutic product effect decreased [Not Recovered/Not Resolved]
  - Injection site pain [Not Recovered/Not Resolved]
  - Joint instability [Recovered/Resolved]
  - Osteoarthritis [Recovered/Resolved]
  - Joint stiffness [Recovered/Resolved]
  - Spinal laminectomy [Unknown]
  - Heart rate decreased [Recovering/Resolving]
  - Dupuytren^s contracture [Unknown]

NARRATIVE: CASE EVENT DATE: 2005
